FAERS Safety Report 5187636-8 (Version None)
Quarter: 2006Q4

REPORT INFORMATION
  Report Type: 
  Country: None (occurrence: None)
  Receive Date: 20061220
  Receipt Date: 20051004
  Transmission Date: 20070319
  Serious: No
  Sender: FDA-Public Use
  Company Number: US-AMGEN-US152950

PATIENT
  Sex: Female

DRUGS (1)
  1. ENBREL [Suspect]
     Indication: RHEUMATOID ARTHRITIS
     Route: 065
     Dates: start: 20050919

REACTIONS (3)
  - INJECTION SITE BRUISING [None]
  - INJECTION SITE REACTION [None]
  - THERAPEUTIC RESPONSE DELAYED [None]
